FAERS Safety Report 9388378 (Version 1)
Quarter: 2013Q3

REPORT INFORMATION
  Report Type: Spontaneous
  Country: US (occurrence: US)
  Receive Date: 20130708
  Receipt Date: 20130708
  Transmission Date: 20140515
  Serious: Yes (Hospitalization, Other)
  Sender: FDA-Public Use
  Company Number: PHHY2013US069280

PATIENT
  Age: 71 Year
  Sex: Male

DRUGS (7)
  1. ACETYLSALICYLIC ACID [Suspect]
     Indication: CARDIAC DISORDER
     Dosage: 81 MG DAILY
     Route: 048
  2. ACETYLSALICYLIC ACID [Suspect]
     Dosage: 325 MG DAILY
     Route: 048
  3. LIPITOR [Concomitant]
  4. NIASPAN [Concomitant]
  5. METOPROLOL [Concomitant]
  6. FISH OIL [Concomitant]
  7. COENZYME Q10 [Concomitant]

REACTIONS (6)
  - Myocardial infarction [Unknown]
  - Anal haemorrhage [Unknown]
  - Colitis [Unknown]
  - Constipation [Unknown]
  - Pain [Unknown]
  - Incorrect drug administration duration [Unknown]
